FAERS Safety Report 20643182 (Version 4)
Quarter: 2022Q3

REPORT INFORMATION
  Report Type: Report from Study
  Country: US (occurrence: US)
  Receive Date: 20220328
  Receipt Date: 20220729
  Transmission Date: 20221027
  Serious: No
  Sender: FDA-Public Use
  Company Number: US-NOVARTISTESTPH-NVSC2022US069882

PATIENT
  Age: 82 Year
  Sex: Female

DRUGS (1)
  1. ENTRESTO [Suspect]
     Active Substance: SACUBITRIL\VALSARTAN
     Indication: Product used for unknown indication
     Dosage: UNK
     Route: 065

REACTIONS (11)
  - COVID-19 [Unknown]
  - Weight increased [Recovered/Resolved]
  - Pain in extremity [Unknown]
  - Feeling abnormal [Unknown]
  - Insomnia [Unknown]
  - Depressed mood [Unknown]
  - Dyspnoea [Unknown]
  - Fatigue [Unknown]
  - Memory impairment [Unknown]
  - Dysstasia [Unknown]
  - Asthenia [Unknown]
